FAERS Safety Report 9157591 (Version 1)
Quarter: 2013Q1

REPORT INFORMATION
  Report Type: Spontaneous
  Country: US (occurrence: None)
  Receive Date: 20130311
  Receipt Date: 20130311
  Transmission Date: 20140127
  Serious: Yes (Hospitalization)
  Sender: FDA-Public Use
  Company Number: None

PATIENT
  Age: 80 Year
  Sex: Male

DRUGS (3)
  1. WARFARIN [Suspect]
     Route: 048
  2. VERAPAMIL [Concomitant]
  3. SERTRALINE [Concomitant]

REACTIONS (3)
  - Haematemesis [None]
  - Melaena [None]
  - Intestinal polyp haemorrhage [None]
